FAERS Safety Report 16799790 (Version 2)
Quarter: 2019Q4

REPORT INFORMATION
  Report Type: Spontaneous
  Country: HU (occurrence: HU)
  Receive Date: 20190912
  Receipt Date: 20191017
  Transmission Date: 20200122
  Serious: Yes (Other)
  Sender: FDA-Public Use
  Company Number: HU-PFIZER INC-2019390114

PATIENT
  Age: 42 Year
  Sex: Female
  Weight: 72 kg

DRUGS (11)
  1. EPIRUBICIN HCL [Suspect]
     Active Substance: EPIRUBICIN HYDROCHLORIDE
     Indication: BREAST CANCER METASTATIC
     Dosage: UNK
     Route: 065
     Dates: start: 20131121, end: 20140428
  2. ZOLEDRONIC ACID [Suspect]
     Active Substance: ZOLEDRONIC ACID
     Indication: METASTASES TO BONE
     Dosage: UNK
     Route: 065
  3. ZOLEDRONIC ACID [Suspect]
     Active Substance: ZOLEDRONIC ACID
     Dosage: 4 MG, CYCLIC (EVERY 3 MONTHS)
     Route: 042
     Dates: start: 20180907
  4. RIBOCICLIB. [Suspect]
     Active Substance: RIBOCICLIB
     Indication: BREAST CANCER
     Dosage: 600 MG, 21/7
     Route: 048
     Dates: start: 20180907, end: 20190624
  5. GOSERELIN [Concomitant]
     Active Substance: GOSERELIN
     Dosage: UNK
     Route: 065
     Dates: start: 20131121
  6. CAPECITABINE. [Suspect]
     Active Substance: CAPECITABINE
     Indication: DISEASE PROGRESSION
     Dosage: UNK
     Route: 065
     Dates: start: 20150708, end: 20180810
  7. DENOSUMAB [Concomitant]
     Active Substance: DENOSUMAB
     Dosage: UNK
     Route: 065
     Dates: start: 20150708, end: 20180810
  8. TAMOXIFEN [Concomitant]
     Active Substance: TAMOXIFEN
     Dosage: UNK
     Route: 065
     Dates: start: 20131121
  9. DOCETAXEL. [Suspect]
     Active Substance: DOCETAXEL
     Indication: BREAST CANCER METASTATIC
     Dosage: UNK
     Route: 065
     Dates: start: 20131121, end: 20140428
  10. LETROZOLE. [Suspect]
     Active Substance: LETROZOLE
     Indication: BREAST CANCER
     Dosage: 2.5 MG, 1X/DAY
     Route: 048
     Dates: start: 20180907
  11. RIBOCICLIB. [Suspect]
     Active Substance: RIBOCICLIB
     Dosage: 400 MG, UNK
     Route: 048
     Dates: start: 20190624

REACTIONS (6)
  - Asthenia [Unknown]
  - Leukopenia [Recovered/Resolved]
  - Anaemia [Not Recovered/Not Resolved]
  - Neoplasm progression [Recovered/Resolved]
  - Fatigue [Not Recovered/Not Resolved]
  - Neutropenia [Recovered/Resolved]

NARRATIVE: CASE EVENT DATE: 20100722
